FAERS Safety Report 5129200-2 (Version None)
Quarter: 2006Q4

REPORT INFORMATION
  Report Type: 
  Country: None (occurrence: None)
  Receive Date: 20061012
  Receipt Date: 20060928
  Transmission Date: 20070319
  Serious: Yes (Hospitalization)
  Sender: FDA-Public Use
  Company Number: CIP06002221

PATIENT
  Age: 67 Year
  Sex: Female

DRUGS (9)
  1. MACROBID [Suspect]
     Indication: INFECTION PROPHYLAXIS
     Dosage: 100 MG TWICE DAILY, ORAL
     Route: 048
     Dates: end: 20060801
  2. AZMACORT [Concomitant]
  3. SEREVENT [Concomitant]
  4. ALBUTEROL (SALBUTAMOL) INHALER [Concomitant]
  5. ALBUTEROL [Concomitant]
  6. CLARITIN [Concomitant]
  7. SINGULAIR [Concomitant]
  8. ACIPHEX [Concomitant]
  9. SPIRIVA [Concomitant]

REACTIONS (8)
  - ANTINUCLEAR ANTIBODY POSITIVE [None]
  - DYSPHAGIA [None]
  - DYSPNOEA [None]
  - FOREIGN BODY TRAUMA [None]
  - HEPATIC ENZYME INCREASED [None]
  - OESOPHAGEAL STENOSIS [None]
  - OESOPHAGITIS [None]
  - PULMONARY FIBROSIS [None]
